FAERS Safety Report 13993458 (Version 1)
Quarter: 2017Q3

REPORT INFORMATION
  Report Type: Spontaneous
  Country: DE (occurrence: DE)
  Receive Date: 20170920
  Receipt Date: 20170920
  Transmission Date: 20171128
  Serious: Yes (Other)
  Sender: FDA-Public Use
  Company Number: DE-PFIZER INC-2017401938

PATIENT
  Sex: Female

DRUGS (2)
  1. XALATAN [Suspect]
     Active Substance: LATANOPROST
  2. LATANOPROST. [Suspect]
     Active Substance: LATANOPROST

REACTIONS (5)
  - Ocular hyperaemia [Unknown]
  - Cellulitis [Unknown]
  - Eye inflammation [Unknown]
  - Dry eye [Unknown]
  - Ectropion [Unknown]
